FAERS Safety Report 17722248 (Version 2)
Quarter: 2021Q1

REPORT INFORMATION
  Report Type: Report from Study
  Country: AR (occurrence: AR)
  Receive Date: 20200429
  Receipt Date: 20210112
  Transmission Date: 20210419
  Serious: Yes (Congenital Anomaly, Other)
  Sender: FDA-Public Use
  Company Number: AR-TEVA-2020-AR-1228311

PATIENT
  Sex: Female
  Weight: 3.24 kg

DRUGS (2)
  1. REXFOL [Suspect]
     Active Substance: CYANOCOBALAMIN\FOLIC ACID\IRON POLYMALTOSE
     Route: 064
     Dates: start: 20200210
  2. COPAXONE [Suspect]
     Active Substance: GLATIRAMER ACETATE
     Indication: RELAPSING-REMITTING MULTIPLE SCLEROSIS
     Route: 064
     Dates: start: 20160601, end: 2019

REACTIONS (2)
  - Congenital hydronephrosis [Not Recovered/Not Resolved]
  - Foetal exposure during pregnancy [Unknown]
